FAERS Safety Report 6328635-X (Version None)
Quarter: 2009Q3

REPORT INFORMATION
  Report Type: 
  Country: None (occurrence: None)
  Receive Date: 20090824
  Receipt Date: 20090824
  Transmission Date: 20100115
  Serious: No
  Sender: FDA-Public Use
  Company Number: None

PATIENT
  Sex: Female
  Weight: 60.782 kg

DRUGS (1)
  1. ALENDRONATE SODIUM [Suspect]
     Dosage: 70MG 1 X WEEKLY ORAL (MONTH OF JULY)
     Route: 048

REACTIONS (1)
  - ABDOMINAL PAIN UPPER [None]
